FAERS Safety Report 25709500 (Version 3)
Quarter: 2025Q4

REPORT INFORMATION
  Report Type: Report from Study
  Country: CA (occurrence: CA)
  Receive Date: 20250821
  Receipt Date: 20251210
  Transmission Date: 20260118
  Serious: Yes (Other)
  Sender: TAKEDA
  Company Number: CA-TAKEDA-2025TUS057475

PATIENT
  Age: 78 Year
  Sex: Female

DRUGS (4)
  1. VEDOLIZUMAB [Suspect]
     Active Substance: VEDOLIZUMAB
     Indication: Colitis ulcerative
     Dosage: 300 MILLIGRAM
  2. VEDOLIZUMAB [Suspect]
     Active Substance: VEDOLIZUMAB
     Dosage: 300 MILLIGRAM
  3. ASACOL [Concomitant]
     Active Substance: MESALAMINE
     Dosage: UNK
  4. RAMIPRIL [Concomitant]
     Active Substance: RAMIPRIL
     Dosage: 5 MILLIGRAM

REACTIONS (6)
  - Atypical pneumonia [Recovered/Resolved]
  - Blood pressure increased [Unknown]
  - Sinusitis [Recovered/Resolved]
  - Nasopharyngitis [Unknown]
  - Chest scan abnormal [Recovering/Resolving]
  - Bronchitis [Recovering/Resolving]
